FAERS Safety Report 7434882-6 (Version None)
Quarter: 2011Q2

REPORT INFORMATION
  Report Type: 
  Country: None (occurrence: None)
  Receive Date: 20110418
  Receipt Date: 20110404
  Transmission Date: 20111010
  Serious: Yes (Hospitalization)
  Sender: FDA-Public Use
  Company Number: 030669

PATIENT
  Sex: Female
  Weight: 61 kg

DRUGS (6)
  1. IMIPRAMINE [Concomitant]
  2. MESALAZINE [Concomitant]
  3. CIMZIA [Suspect]
     Indication: CROHN'S DISEASE
     Dosage: (400 MG 1X/2 WEEKS SUBCUTANEOUS), (400 MG 1X/4 WEEKS SUBCUTANEOUS)
     Route: 058
     Dates: start: 20090706, end: 20090801
  4. CIMZIA [Suspect]
     Indication: CROHN'S DISEASE
     Dosage: (400 MG 1X/2 WEEKS SUBCUTANEOUS), (400 MG 1X/4 WEEKS SUBCUTANEOUS)
     Route: 058
     Dates: start: 20090801
  5. NORETHISTERONE [Concomitant]
  6. ESTRADIOL [Concomitant]

REACTIONS (3)
  - APPENDICITIS [None]
  - ABDOMINAL PAIN [None]
  - LEUKOCYTOSIS [None]
